FAERS Safety Report 9121927 (Version 2)
Quarter: 2013Q1

REPORT INFORMATION
  Report Type: Spontaneous
  Country: US (occurrence: US)
  Receive Date: 20130227
  Receipt Date: 20130311
  Transmission Date: 20140127
  Serious: Yes (Other)
  Sender: FDA-Public Use
  Company Number: US-PFIZER INC-2013069229

PATIENT
  Sex: Female

DRUGS (3)
  1. LIPITOR [Suspect]
     Dosage: UNK
  2. CELEBREX [Suspect]
     Dosage: UNK
  3. NEURONTIN [Suspect]
     Dosage: UNK

REACTIONS (5)
  - Cerebrovascular accident [Unknown]
  - Loss of consciousness [Unknown]
  - Pulmonary thrombosis [Unknown]
  - Ulcer haemorrhage [Unknown]
  - Thrombosis [Unknown]
